FAERS Safety Report 19259043 (Version 1)
Quarter: 2021Q2

REPORT INFORMATION
  Report Type: Report from Study
  Country: PE (occurrence: PE)
  Receive Date: 20210514
  Receipt Date: 20210514
  Transmission Date: 20210717
  Serious: Yes (Death)
  Sender: FDA-Public Use
  Company Number: NVSC2021PE108199

PATIENT
  Age: 35 Year
  Sex: Male

DRUGS (1)
  1. REVOLADE [Suspect]
     Active Substance: ELTROMBOPAG OLAMINE
     Indication: IMMUNE THROMBOCYTOPENIA
     Dosage: 75 MG, QD
     Route: 048
     Dates: start: 20181025

REACTIONS (1)
  - Death [Fatal]

NARRATIVE: CASE EVENT DATE: 20210511
